FAERS Safety Report 14455313 (Version 1)
Quarter: 2018Q1

REPORT INFORMATION
  Report Type: Spontaneous
  Country: NL (occurrence: NL)
  Receive Date: 20180129
  Receipt Date: 20180129
  Transmission Date: 20180509
  Serious: Yes (Other)
  Sender: FDA-Public Use
  Company Number: NL-TEVA-2018-NL-853203

PATIENT
  Age: 41 Year
  Sex: Female
  Weight: 65 kg

DRUGS (1)
  1. DULOXETINE GASTRO-RESISTANT CAPSULE, 30 MG (MILLIGRAM) [Suspect]
     Active Substance: DULOXETINE
     Indication: DEPRESSION
     Dosage: 120 MILLIGRAM DAILY; 2 PER DAY
     Route: 065
     Dates: start: 201601

REACTIONS (3)
  - Therapeutic response unexpected [Recovered/Resolved]
  - Tunnel vision [Recovered/Resolved]
  - Migraine [Recovered/Resolved]

NARRATIVE: CASE EVENT DATE: 20160204
